FAERS Safety Report 24547884 (Version 1)
Quarter: 2024Q4

REPORT INFORMATION
  Report Type: Spontaneous
  Country: US (occurrence: US)
  Receive Date: 20241025
  Receipt Date: 20241025
  Transmission Date: 20250115
  Serious: No
  Sender: ABBVIE
  Company Number: US-ABBVIE-5970463

PATIENT

DRUGS (3)
  1. LINACLOTIDE [Suspect]
     Active Substance: LINACLOTIDE
     Indication: Diarrhoea
     Dosage: ONE 72 MICROGRAM CAPSULES ON THE FIRST WEEK
     Route: 048
  2. LINACLOTIDE [Suspect]
     Active Substance: LINACLOTIDE
     Indication: Diarrhoea
     Dosage: TWO 72 MICROGRAM CAPSULES
     Route: 048
  3. LINACLOTIDE [Suspect]
     Active Substance: LINACLOTIDE
     Indication: Diarrhoea
     Dosage: ALTERNATE 1 PILL ONE DAY AND 2 PILLS THE NEXT DAY
     Route: 048

REACTIONS (2)
  - Drug intolerance [Unknown]
  - Diarrhoea [Not Recovered/Not Resolved]
